FAERS Safety Report 5127282-5 (Version None)
Quarter: 2006Q4

REPORT INFORMATION
  Report Type: 
  Country: None (occurrence: None)
  Receive Date: 20061013
  Receipt Date: 20060901
  Transmission Date: 20070319
  Serious: Yes (Life-Threatening, Hospitalization)
  Sender: FDA-Public Use
  Company Number: DE-MERCK-0609DEU00006

PATIENT
  Age: 62 Year
  Sex: Male

DRUGS (6)
  1. FOSAMAX [Suspect]
     Indication: OSTEOPOROSIS
     Route: 048
     Dates: end: 20050201
  2. LERCANIDIPINE HYDROCHLORIDE [Concomitant]
     Route: 065
  3. FLUOCORTOLONE CAPROATE [Concomitant]
     Route: 065
  4. MOXONIDINE [Concomitant]
     Route: 065
  5. SODIUM FERRIC GLUCONATE COMPLEX [Concomitant]
     Route: 065
  6. PREDNISOLONE [Concomitant]
     Route: 065

REACTIONS (3)
  - DIVERTICULAR PERFORATION [None]
  - DIVERTICULITIS [None]
  - SIGMOIDITIS [None]
